FAERS Safety Report 5409881-6 (Version None)
Quarter: 2007Q3

REPORT INFORMATION
  Report Type: 
  Country: None (occurrence: None)
  Receive Date: 20070809
  Receipt Date: 20070731
  Transmission Date: 20080115
  Serious: Yes (Death, Other)
  Sender: FDA-Public Use
  Company Number: GB-PFIZER INC-2007061689

PATIENT
  Age: 56 Year
  Sex: Male
  Weight: 70 kg

DRUGS (2)
  1. GABAPENTIN [Suspect]
     Indication: NEURALGIA
     Dosage: DAILY DOSE:3000MG
     Route: 048
  2. OXYCODONE HCL [Interacting]
     Indication: NEURALGIA
     Route: 048

REACTIONS (5)
  - CONFUSIONAL STATE [None]
  - DEATH [None]
  - DRUG INTERACTION [None]
  - HALLUCINATION [None]
  - NEUROTOXICITY [None]
